FAERS Safety Report 21329011 (Version 1)
Quarter: 2022Q3

REPORT INFORMATION
  Report Type: Spontaneous
  Country: US (occurrence: US)
  Receive Date: 20220913
  Receipt Date: 20220913
  Transmission Date: 20221027
  Serious: Yes (Hospitalization, Other)
  Sender: FDA-Public Use
  Company Number: US-Blueprint Medicines Corporation-404

PATIENT
  Sex: Female

DRUGS (1)
  1. AYVAKIT [Suspect]
     Active Substance: AVAPRITINIB
     Indication: Systemic mastocytosis
     Route: 048
     Dates: start: 20210805

REACTIONS (9)
  - Large intestine infection [Unknown]
  - Blood iron abnormal [Unknown]
  - Rash [Unknown]
  - Pruritus [Unknown]
  - Headache [Unknown]
  - Feeling abnormal [Unknown]
  - Peripheral swelling [Unknown]
  - Stress [Unknown]
  - Off label use [Unknown]
